FAERS Safety Report 20933163 (Version 2)
Quarter: 2022Q2

REPORT INFORMATION
  Report Type: Spontaneous
  Country: US (occurrence: US)
  Receive Date: 20220608
  Receipt Date: 20220615
  Transmission Date: 20220721
  Serious: Yes (Other)
  Sender: FDA-Public Use
  Company Number: US-PFIZER INC-202200657381

PATIENT
  Age: 66 Year
  Sex: Female

DRUGS (1)
  1. IBRANCE [Suspect]
     Active Substance: PALBOCICLIB
     Dosage: 100MG TABLET ON MONDAY, WEDNESDAY, FRIDAY, AND SATURDAY EVERY OTHER WEEK
     Dates: start: 20220504, end: 20220528

REACTIONS (3)
  - Full blood count abnormal [Unknown]
  - Off label use [Unknown]
  - Neoplasm progression [Unknown]
